FAERS Safety Report 23772375 (Version 1)
Quarter: 2024Q2

REPORT INFORMATION
  Report Type: Spontaneous
  Country: US (occurrence: None)
  Receive Date: 20240423
  Receipt Date: 20240423
  Transmission Date: 20240716
  Serious: Yes (Other)
  Sender: FDA-Public Use
  Company Number: 2024A090225

PATIENT
  Age: 46 Year
  Sex: Female

DRUGS (1)
  1. IRESSA [Suspect]
     Active Substance: GEFITINIB
     Indication: Neoplasm malignant
     Route: 048

REACTIONS (2)
  - Neoplasm malignant [Unknown]
  - Drug resistance [Unknown]
